FAERS Safety Report 7340046-7 (Version None)
Quarter: 2011Q1

REPORT INFORMATION
  Report Type: 
  Country: None (occurrence: None)
  Receive Date: 20110301
  Receipt Date: 20110222
  Transmission Date: 20110831
  Serious: Yes (Death, Hospitalization)
  Sender: FDA-Public Use
  Company Number: WAES 1102USA00954

PATIENT
  Age: 88 Year
  Sex: Female

DRUGS (8)
  1. ZOCOR [Suspect]
     Dosage: PO
     Route: 048
     Dates: start: 20091002, end: 20091016
  2. ASPIRIN [Concomitant]
  3. AMIODARONE HCL [Concomitant]
  4. CARVEDILOL [Concomitant]
  5. BLINDED THERAPY [Suspect]
     Indication: ACUTE CORONARY SYNDROME
     Dosage: 2 TAB, DAILY, PO
     Route: 048
     Dates: start: 20091007
  6. CLOPIDOGREL BISULFATE [Concomitant]
  7. BIVALIRUDIN [Concomitant]
  8. DONEPEZIL HCL [Concomitant]

REACTIONS (13)
  - GANGRENE [None]
  - ARTERITIS [None]
  - HAEMORRHAGIC ANAEMIA [None]
  - DEVICE RELATED INFECTION [None]
  - VENOUS THROMBOSIS LIMB [None]
  - FALL [None]
  - KLEBSIELLA INFECTION [None]
  - GENERAL PHYSICAL HEALTH DETERIORATION [None]
  - CARDIOVASCULAR DISORDER [None]
  - HEPATITIS ACUTE [None]
  - SEPSIS [None]
  - PERIPHERAL ISCHAEMIA [None]
  - FEMORAL NECK FRACTURE [None]
